FAERS Safety Report 21473541 (Version 1)
Quarter: 2022Q4

REPORT INFORMATION
  Report Type: Spontaneous
  Country: SA (occurrence: SA)
  Receive Date: 20221018
  Receipt Date: 20221018
  Transmission Date: 20230112
  Serious: Yes (Disabling)
  Sender: FDA-Public Use
  Company Number: SA-AMERICAN REGENT INC-2022002968

PATIENT
  Age: 42 Year
  Sex: Female
  Weight: 79 kg

DRUGS (6)
  1. FERINJECT [Suspect]
     Active Substance: FERRIC CARBOXYMALTOSE
     Indication: Iron deficiency anaemia
     Dosage: DILUTION: 1000 MG IN 250 (UNITS UNSPECIFIED) OF UNSPECIFIED SOLUTION (1 GM,1 IN 1 WK)
     Dates: start: 20220825, end: 20220825
  2. FERINJECT [Suspect]
     Active Substance: FERRIC CARBOXYMALTOSE
     Dosage: DILUTION: 500 MG IN 250 (UNITS UNSPECIFIED) OF UNSPECIFIED SOLUTION (500 MG,1 IN 1 WK)
     Dates: start: 20220915, end: 20220915
  3. AVIL [PHENIRAMINE MALEATE] [Concomitant]
     Indication: Premedication
     Dosage: UNK
     Route: 065
     Dates: start: 20220825, end: 20220825
  4. AVIL [PHENIRAMINE MALEATE] [Concomitant]
     Dosage: UNK
     Route: 065
     Dates: start: 20220915, end: 20220915
  5. ADOL [Concomitant]
     Indication: Premedication
     Dosage: UNK
     Route: 065
     Dates: start: 20220825, end: 20220825
  6. ADOL [Concomitant]
     Dosage: UNK
     Route: 065
     Dates: start: 20220915, end: 20220915

REACTIONS (1)
  - Skin discolouration [Not Recovered/Not Resolved]

NARRATIVE: CASE EVENT DATE: 20220801
